FAERS Safety Report 7617983-9 (Version None)
Quarter: 2011Q3

REPORT INFORMATION
  Report Type: 
  Country: None (occurrence: None)
  Receive Date: 20110718
  Receipt Date: 20110705
  Transmission Date: 20111222
  Serious: Yes (Other)
  Sender: FDA-Public Use
  Company Number: PHHY2011AR60580

PATIENT
  Sex: Female

DRUGS (2)
  1. RASILEZ D [Suspect]
     Dosage: UNK
  2. RELIVERAN [Concomitant]
     Indication: VERTIGO

REACTIONS (2)
  - CORNEAL OEDEMA [None]
  - KERATITIS [None]
